FAERS Safety Report 11987592 (Version 2)
Quarter: 2016Q1

REPORT INFORMATION
  Report Type: Report from Study
  Country: US (occurrence: US)
  Receive Date: 20160202
  Receipt Date: 20160303
  Transmission Date: 20160526
  Serious: No
  Sender: FDA-Public Use
  Company Number: PHEH2016US001541

PATIENT
  Sex: Male

DRUGS (1)
  1. COSENTYX [Suspect]
     Active Substance: SECUKINUMAB
     Indication: PSORIASIS
     Dosage: 300 MG, QW
     Route: 058

REACTIONS (3)
  - Device leakage [Unknown]
  - Injection site haemorrhage [Unknown]
  - Injection site discolouration [Unknown]
